FAERS Safety Report 6243110-9 (Version None)
Quarter: 2009Q2

REPORT INFORMATION
  Report Type: 
  Country: None (occurrence: None)
  Receive Date: 20090622
  Receipt Date: 20090611
  Transmission Date: 20091009
  Serious: Yes (Hospitalization)
  Sender: FDA-Public Use
  Company Number: 2009AL003974

PATIENT
  Age: 71 Year
  Sex: Male

DRUGS (5)
  1. RAMIPRIL [Suspect]
     Indication: CORONARY ARTERY DISEASE
     Dosage: 5 MG; QD; PO
     Route: 048
     Dates: start: 20070801
  2. HYDROCHLOROTHIAZIDE [Suspect]
     Indication: HYPERTENSION
     Dosage: 12. 5 MG; QD; PO
     Route: 048
     Dates: start: 20070801, end: 20081202
  3. ASPIRIN [Concomitant]
  4. FLUVASTATIN SODIUM [Concomitant]
  5. METOPROLOL SUCCINATE [Concomitant]

REACTIONS (6)
  - BRADYCARDIA [None]
  - DEPRESSED LEVEL OF CONSCIOUSNESS [None]
  - DIZZINESS [None]
  - HYPOTENSION [None]
  - QRS AXIS ABNORMAL [None]
  - VOMITING [None]
